FAERS Safety Report 18559849 (Version 2)
Quarter: 2020Q4

REPORT INFORMATION
  Report Type: Report from Study
  Country: CO (occurrence: CO)
  Receive Date: 20201130
  Receipt Date: 20201214
  Transmission Date: 20210114
  Serious: Yes (Hospitalization, Other)
  Sender: FDA-Public Use
  Company Number: CO-TAKEDA-CO202015849

PATIENT
  Age: 11 Year
  Sex: Male
  Weight: 29 kg

DRUGS (5)
  1. LANSOPRAZOLE. [Concomitant]
     Active Substance: LANSOPRAZOLE
  2. HUMAN NORMAL IMMUNOGLOBULIN [Suspect]
     Active Substance: HUMAN IMMUNOGLOBULIN G
     Indication: PRIMARY IMMUNODEFICIENCY SYNDROME
     Dosage: 100 MILLIGRAM PER MILLILITRE
     Route: 042
     Dates: start: 20170613, end: 20200819
  3. AMLODIPINE [Concomitant]
     Active Substance: AMLODIPINE BESYLATE
  4. CYCLOSPORINE. [Concomitant]
     Active Substance: CYCLOSPORINE
  5. ACYCLOVIR [ACICLOVIR] [Concomitant]
     Active Substance: ACYCLOVIR

REACTIONS (8)
  - Unevaluable event [Recovered/Resolved]
  - Platelet count decreased [Recovered/Resolved]
  - Vomiting [Recovered/Resolved]
  - Rash [Recovered/Resolved]
  - Inappropriate schedule of product administration [Unknown]
  - Pneumonia [Recovered/Resolved]
  - Fungal infection [Recovered/Resolved]
  - Bone marrow transplant [Recovered/Resolved]

NARRATIVE: CASE EVENT DATE: 20200504
